FAERS Safety Report 9154794 (Version 2)
Quarter: 2013Q1

REPORT INFORMATION
  Report Type: Spontaneous
  Country: GB (occurrence: None)
  Receive Date: 20130207
  Receipt Date: 20130208
  Transmission Date: 20140127
  Serious: Yes (Other)
  Sender: FDA-Public Use
  Company Number: AUR-APL-2013-01088

PATIENT
  Age: 78 Year
  Sex: Male
  Weight: 78 kg

DRUGS (1)
  1. SIMVASTATIN (SIMVASTATIN) [Suspect]
     Indication: HYPERCHOLESTEROLAEMIA
     Route: 048
     Dates: start: 20120321, end: 20120904

REACTIONS (2)
  - Muscle spasms [None]
  - Nipple pain [None]
